FAERS Safety Report 9815776 (Version 1)
Quarter: 2014Q1

REPORT INFORMATION
  Report Type: Spontaneous
  Country: NL (occurrence: NL)
  Receive Date: 20140114
  Receipt Date: 20140114
  Transmission Date: 20141002
  Serious: Yes (Life-Threatening, Hospitalization)
  Sender: FDA-Public Use
  Company Number: NL-TEVA-454949ISR

PATIENT
  Age: 52 Year
  Sex: Female
  Weight: 80 kg

DRUGS (5)
  1. HYDROCHLOORTHIAZIDE TABLET 25MG [Suspect]
     Indication: OEDEMA PERIPHERAL
     Dosage: 25 MILLIGRAM DAILY; ONCE DAILY 1 TABLET
     Route: 048
     Dates: start: 2012, end: 20131115
  2. PARNATE TABLET 10MG [Suspect]
     Indication: DEPRESSION
     Dosage: 60 MILLIGRAM DAILY; TWICE DAILY 3 TABLETS
     Route: 048
     Dates: start: 20131115
  3. NARDIL TABLET OMHULD 15MG [Suspect]
     Indication: DEPRESSION
     Dosage: 90 MILLIGRAM DAILY; TWICE DAILY 3 TABLETS
     Route: 048
     Dates: start: 201112
  4. THYRAX DUOTAB TABLET 0,100MG [Suspect]
     Indication: THYROID DISORDER
     Dosage: .1 MILLIGRAM DAILY; ONCE DAILY 1 TABLET
     Route: 048
     Dates: start: 2010
  5. DEVARON TABLET 400IE [Concomitant]
     Dosage: 800 IU (INTERNATIONAL UNIT) DAILY; TWICE DAILY 1 TABLET
     Route: 048
     Dates: start: 20131112

REACTIONS (4)
  - Hypertensive crisis [Recovered/Resolved with Sequelae]
  - Hypokalaemia [Recovered/Resolved]
  - Epilepsy [Unknown]
  - Haemorrhage intracranial [Unknown]
